FAERS Safety Report 10083581 (Version 1)
Quarter: 2014Q2

REPORT INFORMATION
  Report Type: Spontaneous
  Country: US (occurrence: None)
  Receive Date: 20140416
  Receipt Date: 20140416
  Transmission Date: 20141212
  Serious: Yes (Life-Threatening, Hospitalization, Disabling)
  Sender: FDA-Public Use
  Company Number: None

PATIENT
  Age: 60 Year
  Sex: Male
  Weight: 117.94 kg

DRUGS (1)
  1. INCIVEK 375MG VERTEX [Suspect]
     Indication: HEPATITIS C
     Route: 048

REACTIONS (3)
  - Rash [None]
  - Skin exfoliation [None]
  - Tremor [None]
